FAERS Safety Report 14116493 (Version 1)
Quarter: 2017Q4

REPORT INFORMATION
  Report Type: Spontaneous
  Country: DE (occurrence: DE)
  Receive Date: 20171023
  Receipt Date: 20171023
  Transmission Date: 20180321
  Serious: Yes (Other)
  Sender: FDA-Public Use
  Company Number: DE-TEVA-816926GER

PATIENT
  Age: 44 Year
  Sex: Female

DRUGS (3)
  1. HUMALOG [Concomitant]
     Active Substance: INSULIN LISPRO
  2. ZINK-RATIOPHARM 25 MG BRAUSETABLETTEN [Suspect]
     Active Substance: ZINC
     Indication: ZINC DEFICIENCY
     Dosage: .5 DOSAGE FORMS DAILY; 1 DOSAGE FORM IS ONE EFFERVESCENT TABLET
     Route: 048
     Dates: start: 2017, end: 201710
  3. MORPHIUM [Suspect]
     Active Substance: MORPHINE
     Dosage: APPROXIMATELY TAKEN AT THE SAME TIME AS ZINC
     Dates: end: 2017

REACTIONS (5)
  - Condition aggravated [None]
  - Abdominal pain [Not Recovered/Not Resolved]
  - Mucous stools [Not Recovered/Not Resolved]
  - Constipation [Not Recovered/Not Resolved]
  - Haematochezia [Not Recovered/Not Resolved]

NARRATIVE: CASE EVENT DATE: 2017
